FAERS Safety Report 22846078 (Version 3)
Quarter: 2024Q2

REPORT INFORMATION
  Report Type: Spontaneous
  Country: US (occurrence: US)
  Receive Date: 20230821
  Receipt Date: 20240415
  Transmission Date: 20240716
  Serious: Yes (Other)
  Sender: FDA-Public Use
  Company Number: US-SUNOVION-2023SUN001001

PATIENT

DRUGS (2)
  1. LATUDA [Suspect]
     Active Substance: LURASIDONE HYDROCHLORIDE
     Indication: Hallucination
     Dosage: 40 MG, HS
     Route: 048
  2. TOPAMAX [Concomitant]
     Active Substance: TOPIRAMATE
     Indication: Seizure
     Dosage: UNK
     Route: 065

REACTIONS (4)
  - Seizure [Unknown]
  - Insomnia [Unknown]
  - Off label use [Unknown]
  - Drug effective for unapproved indication [Unknown]
